FAERS Safety Report 4551769-7 (Version None)
Quarter: 2005Q1

REPORT INFORMATION
  Report Type: 
  Country: None (occurrence: None)
  Receive Date: 20050113
  Receipt Date: 20031006
  Transmission Date: 20050727
  Serious: Yes (Death)
  Sender: FDA-Public Use
  Company Number: FR-GLAXOSMITHKLINE-B0310856A

PATIENT
  Sex: Male
  Weight: 64 kg

DRUGS (3)
  1. AVANDIA [Suspect]
     Indication: DIABETES MELLITUS NON-INSULIN-DEPENDENT
     Dosage: 2MG TWICE PER DAY
     Route: 048
     Dates: start: 20030707, end: 20030925
  2. DIAMICRON [Concomitant]
     Indication: DIABETES MELLITUS NON-INSULIN-DEPENDENT
     Dosage: 30MG TWICE PER DAY
     Route: 048
     Dates: start: 20020601, end: 20030925
  3. COVERSYL [Concomitant]
     Indication: HYPERTENSION
     Dosage: 4MG PER DAY
     Route: 048
     Dates: start: 20020201, end: 20030925

REACTIONS (4)
  - ARRHYTHMIA [None]
  - CEREBRAL HAEMORRHAGE [None]
  - MYOCARDIAL INFARCTION [None]
  - SUDDEN DEATH [None]
